FAERS Safety Report 6970989-5 (Version None)
Quarter: 2010Q3

REPORT INFORMATION
  Report Type: 
  Country: None (occurrence: None)
  Receive Date: 20100908
  Receipt Date: 20100827
  Transmission Date: 20110219
  Serious: Yes (Hospitalization, Other)
  Sender: FDA-Public Use
  Company Number: US-PFIZER INC-2010025932

PATIENT
  Sex: Female

DRUGS (10)
  1. CHANTIX [Suspect]
     Indication: SMOKING CESSATION THERAPY
     Dosage: STARTING AND CONTINUING PACKS
     Dates: start: 20070228, end: 20070905
  2. LEXAPRO [Concomitant]
     Indication: PANIC DISORDER
     Dosage: UNK
     Dates: start: 20060101
  3. LEXAPRO [Concomitant]
     Indication: DEPRESSION
  4. LEXAPRO [Concomitant]
     Indication: ANXIETY
  5. VALIUM [Concomitant]
     Indication: PANIC DISORDER
     Dosage: UNK
     Dates: start: 20060101, end: 20100101
  6. VALIUM [Concomitant]
     Indication: DEPRESSION
  7. VALIUM [Concomitant]
     Indication: ANXIETY
  8. TRAZODONE [Concomitant]
     Indication: PANIC DISORDER
     Dosage: UNK
     Dates: start: 20060101
  9. TRAZODONE [Concomitant]
     Indication: DEPRESSION
  10. TRAZODONE [Concomitant]
     Indication: ANXIETY

REACTIONS (7)
  - ANXIETY [None]
  - CONVULSION [None]
  - DEPRESSION [None]
  - DYSTONIA [None]
  - LOSS OF CONSCIOUSNESS [None]
  - MENTAL DISORDER [None]
  - PANIC REACTION [None]
